FAERS Safety Report 6594543-2 (Version None)
Quarter: 2010Q1

REPORT INFORMATION
  Report Type: 
  Country: None (occurrence: None)
  Receive Date: 20100222
  Receipt Date: 20100217
  Transmission Date: 20100710
  Serious: Yes (Death, Other)
  Sender: FDA-Public Use
  Company Number: PHHY2010JP09629

PATIENT
  Age: 51 Year
  Sex: Female

DRUGS (2)
  1. CYCLOSPORINE [Suspect]
     Indication: STEM CELL TRANSPLANT
     Dosage: UNK
     Dates: start: 20080101, end: 20080101
  2. METHOTREXATE [Suspect]
     Indication: STEM CELL TRANSPLANT
     Dosage: UNK
     Dates: start: 20080101

REACTIONS (5)
  - ACUTE GRAFT VERSUS HOST DISEASE IN SKIN [None]
  - MULTI-ORGAN FAILURE [None]
  - PULMONARY ALVEOLAR HAEMORRHAGE [None]
  - SUBDURAL HAEMATOMA [None]
  - THROMBOTIC MICROANGIOPATHY [None]
